FAERS Safety Report 16339284 (Version 2)
Quarter: 2019Q2

REPORT INFORMATION
  Report Type: Spontaneous
  Country: CA (occurrence: CA)
  Receive Date: 20190521
  Receipt Date: 20190528
  Transmission Date: 20190711
  Serious: Yes (Hospitalization, Other)
  Sender: FDA-Public Use
  Company Number: CA-PFIZER INC-2019209670

PATIENT
  Age: 46 Year
  Sex: Female

DRUGS (19)
  1. PREDNISONE. [Concomitant]
     Active Substance: PREDNISONE
     Dosage: 15 MG, 1X/DAY (WITH ORAL DOSES UPTO 50MG)
     Route: 048
     Dates: start: 200412
  2. NASONEX [Concomitant]
     Active Substance: MOMETASONE FUROATE
     Dosage: UNK, AS NEEDED
     Route: 065
  3. CRESTOR [Concomitant]
     Active Substance: ROSUVASTATIN CALCIUM
     Dosage: 20 MG, 1X/DAY
     Route: 048
  4. JANUVIA [Concomitant]
     Active Substance: SITAGLIPTIN PHOSPHATE
     Dosage: 100 MG, 1X/DAY
     Route: 048
     Dates: start: 201507
  5. VITAMIN B12 [Concomitant]
     Active Substance: CYANOCOBALAMIN
     Dosage: 1200 UG, 1X/DAY
     Route: 048
  6. ONDANSETRON [Concomitant]
     Active Substance: ONDANSETRON
     Dosage: 8 MG, AS NEEDED
     Route: 065
  7. PANTOLOC [PANTOPRAZOLE] [Concomitant]
     Active Substance: PANTOPRAZOLE SODIUM
     Dosage: 40 MG, 1X/DAY
     Route: 048
     Dates: start: 2001
  8. ESTROGEL [Concomitant]
     Active Substance: ESTRADIOL
     Dosage: 0.06% 1 PUMP PUT ON ARM EACH DAY
     Route: 061
     Dates: start: 20170613
  9. B10 COMPLEX [Concomitant]
     Dosage: 1200 UG, 1X/DAY
     Route: 048
  10. BACTROBAN [MUPIROCIN CALCIUM] [Concomitant]
     Indication: NASAL ULCER
     Dosage: UNK UNK, AS NEEDED
     Route: 065
  11. LOMOTIL [LOPERAMIDE HYDROCHLORIDE] [Concomitant]
     Dosage: UNK, AS NEEDED
     Route: 065
  12. FLOVENT [Concomitant]
     Active Substance: FLUTICASONE PROPIONATE
     Dosage: UNK, AS NEEDED
     Route: 065
  13. VENTOLIN [Concomitant]
     Active Substance: ALBUTEROL SULFATE
     Dosage: UNK, AS NEEDED
     Route: 065
  14. ORACORT [PREDNISONE] [Concomitant]
     Indication: MOUTH ULCERATION
     Dosage: UNK, AS NEEDED
     Route: 065
  15. METHOTREXATE SODIUM. [Suspect]
     Active Substance: METHOTREXATE SODIUM
     Dosage: UNK
     Route: 065
     Dates: start: 2014, end: 2017
  16. VITAMIN D3 [Concomitant]
     Active Substance: CHOLECALCIFEROL
     Dosage: 1000 IU, 1X/DAY
     Route: 048
     Dates: start: 2006
  17. VENOFER [Concomitant]
     Active Substance: IRON SUCROSE
     Dosage: UNK
     Route: 042
  18. METHOTREXATE SODIUM. [Suspect]
     Active Substance: METHOTREXATE SODIUM
     Dosage: UNK
     Route: 065
     Dates: start: 200412, end: 200507
  19. ACETAMINOPHEN. [Concomitant]
     Active Substance: ACETAMINOPHEN
     Dosage: 3 DF, 2X/DAY (3X325MG ORALLY TWICE DAILY (MORNING AND BEDTIME))
     Route: 048

REACTIONS (22)
  - Pyrexia [Unknown]
  - Umbilical hernia [Unknown]
  - Steroid diabetes [Unknown]
  - Nephrolithiasis [Unknown]
  - Mammogram abnormal [Unknown]
  - Sepsis [Unknown]
  - Haemangioma [Unknown]
  - Intervertebral disc degeneration [Unknown]
  - Vomiting [Unknown]
  - Drug ineffective [Unknown]
  - Kidney infection [Unknown]
  - Pain in extremity [Unknown]
  - Arthralgia [Unknown]
  - Diverticulum [Unknown]
  - Natural killer cell count increased [Unknown]
  - Vaginal cellulitis [Unknown]
  - Musculoskeletal pain [Unknown]
  - Nausea [Unknown]
  - Sleep apnoea syndrome [Unknown]
  - Varicella [Unknown]
  - Cataract [Unknown]
  - Haematoma infection [Unknown]

NARRATIVE: CASE EVENT DATE: 2004
